FAERS Safety Report 7458159-8 (Version None)
Quarter: 2011Q2

REPORT INFORMATION
  Report Type: 
  Country: None (occurrence: None)
  Receive Date: 20110504
  Receipt Date: 20110503
  Transmission Date: 20111010
  Serious: Yes (Death)
  Sender: FDA-Public Use
  Company Number: PHHY2011US28647

PATIENT
  Sex: Male
  Weight: 157 kg

DRUGS (3)
  1. ZOMETA [Suspect]
     Indication: METASTASES TO BONE
     Dosage: 4 MG
     Route: 042
     Dates: start: 20110209
  2. CISPLATIN [Concomitant]
     Indication: LUNG NEOPLASM MALIGNANT
     Dosage: 150 MG, DAILY
     Route: 042
     Dates: start: 20100209
  3. ALIMTA [Concomitant]
     Indication: LUNG NEOPLASM MALIGNANT
     Dosage: 100 MG, DAILY
     Route: 042
     Dates: start: 20100209

REACTIONS (6)
  - METASTASES TO BONE [None]
  - ABDOMINAL PAIN [None]
  - METASTASES TO LIVER [None]
  - NEOPLASM MALIGNANT [None]
  - DISEASE PROGRESSION [None]
  - MUSCULOSKELETAL CHEST PAIN [None]
